FAERS Safety Report 4441657-9 (Version None)
Quarter: 2004Q3

REPORT INFORMATION
  Report Type: 
  Country: None (occurrence: None)
  Receive Date: 20040903
  Receipt Date: 20040820
  Transmission Date: 20050211
  Serious: Yes (Hospitalization)
  Sender: FDA-Public Use
  Company Number: A-CH2004-07180

PATIENT
  Age: 45 Year
  Sex: Female
  Weight: 51 kg

DRUGS (8)
  1. TRACLEER [Suspect]
     Indication: PULMONARY HYPERTENSION
     Dosage: 125 MG, BID, ORAL : 250 MG, BID, ORAL : 125 MG, BID, ORAL
     Route: 048
     Dates: start: 20040511
  2. TRACLEER [Suspect]
     Indication: PULMONARY HYPERTENSION
     Dosage: 125 MG, BID, ORAL : 250 MG, BID, ORAL : 125 MG, BID, ORAL
     Route: 048
     Dates: start: 20040819
  3. PROGRAF [Suspect]
     Indication: LIVER TRANSPLANT
     Dates: start: 20040624
  4. URSOLVAN-200 (URSODEOXYCHOLIC ACID) [Concomitant]
  5. SUCRALFATE [Concomitant]
  6. SOLUPRED (PREDNISOLONE SODIUM SULFOBENZOATE) [Concomitant]
  7. VALACYCLOVIR HCL [Concomitant]
  8. LOVENOX [Concomitant]

REACTIONS (5)
  - COMPLICATIONS OF TRANSPLANT SURGERY [None]
  - DRUG INTERACTION [None]
  - GAMMA-GLUTAMYLTRANSFERASE INCREASED [None]
  - LIVER TRANSPLANT [None]
  - TRANSAMINASES INCREASED [None]
